FAERS Safety Report 16273108 (Version 1)
Quarter: 2019Q2

REPORT INFORMATION
  Report Type: Report from Study
  Country: IT (occurrence: IT)
  Receive Date: 20190506
  Receipt Date: 20190506
  Transmission Date: 20190711
  Serious: Yes (Other)
  Sender: FDA-Public Use
  Company Number: IT-AUROBINDO-AUR-APL-2019-024450

PATIENT

DRUGS (2)
  1. LETROZOLE. [Suspect]
     Active Substance: LETROZOLE
     Indication: BREAST CANCER
     Dosage: 2.5 MILLIGRAM, DAILY
     Route: 048
  2. TRIPTORELIN [Suspect]
     Active Substance: TRIPTORELIN
     Indication: BREAST CANCER
     Dosage: 3.75 MILLIGRAM, EVERY MONTH
     Route: 030

REACTIONS (3)
  - Hypertension [Unknown]
  - Product use in unapproved indication [Unknown]
  - Off label use [Unknown]
